FAERS Safety Report 11174837 (Version 3)
Quarter: 2015Q2

REPORT INFORMATION
  Report Type: Spontaneous
  Country: US (occurrence: US)
  Receive Date: 20150609
  Receipt Date: 20150618
  Transmission Date: 20150821
  Serious: No
  Sender: FDA-Public Use
  Company Number: US-009507513-1506USA003817

PATIENT
  Age: 69 Year
  Sex: Female

DRUGS (10)
  1. LORAZEPAM. [Concomitant]
     Active Substance: LORAZEPAM
     Dosage: UNK
  2. METFORMIN [Concomitant]
     Active Substance: METFORMIN HYDROCHLORIDE
     Dosage: UNK
  3. DIOVAN [Concomitant]
     Active Substance: VALSARTAN
  4. BELSOMRA [Interacting]
     Active Substance: SUVOREXANT
     Indication: INSOMNIA
     Dosage: 10 MG, ONCE A DAY
     Route: 048
     Dates: start: 20150524, end: 20150602
  5. BELSOMRA [Interacting]
     Active Substance: SUVOREXANT
     Indication: POOR QUALITY SLEEP
     Dosage: 2 DF, QD
     Route: 048
     Dates: start: 201506
  6. ATORVASTATIN [Concomitant]
     Active Substance: ATORVASTATIN
     Dosage: UNK
  7. SEROQUEL [Interacting]
     Active Substance: QUETIAPINE FUMARATE
     Dosage: UNK, EVERY NIGHT
  8. MELATONIN [Concomitant]
     Active Substance: MELATONIN
     Dosage: UNK
  9. SYNTHROID [Concomitant]
     Active Substance: LEVOTHYROXINE SODIUM
     Dosage: UNK
  10. BELSOMRA [Suspect]
     Active Substance: SUVOREXANT
     Dosage: 20 MG A DAY
     Route: 048
     Dates: start: 201505

REACTIONS (4)
  - Drug effect incomplete [Unknown]
  - Drug ineffective [Not Recovered/Not Resolved]
  - Drug interaction [Unknown]
  - Tinnitus [Unknown]

NARRATIVE: CASE EVENT DATE: 201505
